FAERS Safety Report 5450548-6 (Version None)
Quarter: 2007Q3

REPORT INFORMATION
  Report Type: 
  Country: None (occurrence: None)
  Receive Date: 20070910
  Receipt Date: 20070824
  Transmission Date: 20080115
  Serious: Yes (Disabling)
  Sender: FDA-Public Use
  Company Number: 2007EN000213

PATIENT
  Age: 57 Year
  Sex: Male
  Weight: 105.6881 kg

DRUGS (10)
  1. OPANA ER [Suspect]
     Indication: PAIN IN EXTREMITY
     Dosage: 20 MG; BID
     Dates: start: 20070101, end: 20070701
  2. OPANA [Suspect]
     Indication: PAIN IN EXTREMITY
     Dosage: 5 MG, Q6H
     Dates: start: 20070101, end: 20070701
  3. LYRICA [Concomitant]
  4. PRILOSEC [Concomitant]
  5. ALLOPURINIL [Concomitant]
  6. ATACAND [Concomitant]
  7. LASIX [Concomitant]
  8. ATENOLOL [Concomitant]
  9. MULTI-VITAMIN [Concomitant]
  10. ASPIRIN [Concomitant]

REACTIONS (7)
  - ABASIA [None]
  - DECREASED APPETITE [None]
  - DEPRESSION [None]
  - DISSOCIATION [None]
  - DIZZINESS [None]
  - INADEQUATE ANALGESIA [None]
  - PRESYNCOPE [None]
